FAERS Safety Report 16005409 (Version 1)
Quarter: 2019Q1

REPORT INFORMATION
  Report Type: Spontaneous
  Country: US (occurrence: US)
  Receive Date: 20190226
  Receipt Date: 20190226
  Transmission Date: 20190418
  Serious: No
  Sender: FDA-Public Use
  Company Number: US-JNJFOC-20190214130

PATIENT
  Sex: Male
  Weight: 99.79 kg

DRUGS (1)
  1. INVEGA SUSTENNA [Suspect]
     Active Substance: PALIPERIDONE PALMITATE
     Indication: PRODUCT USED FOR UNKNOWN INDICATION
     Route: 030
     Dates: start: 2018, end: 2018

REACTIONS (4)
  - Hypoaesthesia [Not Recovered/Not Resolved]
  - Hypertension [Unknown]
  - Product colour issue [Unknown]
  - Angiopathy [Not Recovered/Not Resolved]

NARRATIVE: CASE EVENT DATE: 2018
